FAERS Safety Report 5363820-5 (Version None)
Quarter: 2007Q2

REPORT INFORMATION
  Report Type: 
  Country: None (occurrence: None)
  Receive Date: 20070620
  Receipt Date: 20070619
  Transmission Date: 20071010
  Serious: Yes (Other)
  Sender: FDA-Public Use
  Company Number: A0657135A

PATIENT
  Age: 38 Year
  Sex: Female

DRUGS (2)
  1. NICORETTE [Suspect]
     Route: 002
     Dates: start: 20070609, end: 20070617
  2. NICORETTE [Suspect]
     Indication: SMOKING CESSATION THERAPY
     Route: 002
     Dates: start: 20070609, end: 20070617

REACTIONS (5)
  - CONVULSION [None]
  - DIZZINESS [None]
  - HYPERHIDROSIS [None]
  - NAUSEA [None]
  - TREMOR [None]
